FAERS Safety Report 8579042-0 (Version None)
Quarter: 2012Q3

REPORT INFORMATION
  Report Type: 
  Country: None (occurrence: None)
  Receive Date: 20120808
  Receipt Date: 20120803
  Transmission Date: 20120928
  Serious: Yes (Hospitalization, Other)
  Sender: FDA-Public Use
  Company Number: AU-ROCHE-1010535

PATIENT
  Sex: Female
  Weight: 112 kg

DRUGS (9)
  1. LEVOTHYROXINE SODIUM [Concomitant]
  2. COPEGUS [Suspect]
     Indication: HEPATITIS C
     Route: 048
     Dates: start: 20100806
  3. ZYPREXA [Concomitant]
     Dates: start: 20101122
  4. FLUTICASONE PROPIONATE/SALMETEROL [Concomitant]
     Dates: start: 20110601
  5. MIRTAZAPINE [Concomitant]
     Dates: start: 20110603
  6. NEXIUM [Concomitant]
     Dates: start: 20110114
  7. SEROQUEL [Concomitant]
  8. PEGASYS [Suspect]
     Indication: HEPATITIS C
     Route: 058
     Dates: start: 20100806
  9. ALBUTEROL SULATE [Concomitant]
     Dosage: 12 PUFF

REACTIONS (2)
  - CHRONIC OBSTRUCTIVE PULMONARY DISEASE [None]
  - MESANGIOPROLIFERATIVE GLOMERULONEPHRITIS [None]
